FAERS Safety Report 5591138-4 (Version None)
Quarter: 2008Q1

REPORT INFORMATION
  Report Type: 
  Country: None (occurrence: None)
  Receive Date: 20080110
  Receipt Date: 20080110
  Transmission Date: 20080703
  Serious: Yes (Hospitalization)
  Sender: FDA-Public Use
  Company Number: None

PATIENT
  Sex: Male
  Weight: 111.49 kg

DRUGS (5)
  1. LEUPROLIDE ACETATE [Suspect]
     Dosage: 30 MG
  2. ATENOLOL [Concomitant]
  3. GEMFIBROZIL [Concomitant]
  4. LISINOPRIL [Concomitant]
  5. LOVASTATIN [Concomitant]

REACTIONS (15)
  - ABDOMINAL DISTENSION [None]
  - ABDOMINAL PAIN [None]
  - ABDOMINAL PAIN UPPER [None]
  - CHILLS [None]
  - CONSTIPATION [None]
  - DIARRHOEA [None]
  - DUODENAL ULCER [None]
  - FATIGUE [None]
  - FLATULENCE [None]
  - GASTROINTESTINAL HAEMORRHAGE [None]
  - HAEMORRHOIDS [None]
  - NAUSEA [None]
  - PALLOR [None]
  - PRESYNCOPE [None]
  - RECTAL HAEMORRHAGE [None]
